FAERS Safety Report 9472655 (Version 1)
Quarter: 2013Q3

REPORT INFORMATION
  Report Type: Spontaneous
  Country: US (occurrence: US)
  Receive Date: 20130823
  Receipt Date: 20130823
  Transmission Date: 20140515
  Serious: Yes (Other)
  Sender: FDA-Public Use
  Company Number: US-UCBSA-095747

PATIENT
  Age: 57 Year
  Sex: Female
  Weight: 55 kg

DRUGS (6)
  1. VIMPAT [Suspect]
     Indication: CONVULSION
     Dosage: DOSE: 1 IN THE MORNING, 1 IN THE DAY AND 1 AT NIGHT
     Route: 048
     Dates: start: 2013
  2. VIMPAT [Interacting]
     Indication: CONVULSION
     Route: 048
     Dates: start: 2012, end: 2013
  3. VIMPAT [Interacting]
     Indication: CONVULSION
     Route: 048
     Dates: start: 201208, end: 2012
  4. VIMPAT [Interacting]
     Indication: CONVULSION
     Route: 048
     Dates: start: 201203, end: 201208
  5. COUMADIN [Interacting]
     Indication: AORTIC VALVE REPLACEMENT
     Dosage: DOSE: 5MG ON MONDAY AND 4MG ON REST OF DAYS
     Route: 048
  6. PHENOBARBITAL [Concomitant]
     Indication: CONVULSION
     Route: 048

REACTIONS (6)
  - Loss of consciousness [Recovered/Resolved]
  - Partial seizures [Unknown]
  - Petit mal epilepsy [Unknown]
  - Dizziness [Recovered/Resolved]
  - Confusional state [Recovered/Resolved]
  - Drug interaction [Not Recovered/Not Resolved]
